FAERS Safety Report 5083603-3 (Version None)
Quarter: 2006Q3

REPORT INFORMATION
  Report Type: 
  Country: None (occurrence: None)
  Receive Date: 20060818
  Receipt Date: 20060808
  Transmission Date: 20061208
  Serious: Yes (Hospitalization)
  Sender: FDA-Public Use
  Company Number: FR-GLAXOSMITHKLINE-B0434279A

PATIENT
  Age: 36 Year
  Sex: Male
  Weight: 75 kg

DRUGS (7)
  1. AUGMENTIN [Suspect]
     Indication: PNEUMONIA
     Dosage: 1G THREE TIMES PER DAY
     Route: 048
     Dates: start: 20060321, end: 20060330
  2. TAVANIC [Suspect]
     Route: 048
     Dates: start: 20060412, end: 20060417
  3. KETEK [Suspect]
     Dosage: 2UNIT PER DAY
     Route: 048
     Dates: end: 20060405
  4. DOLIPRANE [Concomitant]
     Indication: PNEUMONIA
     Dosage: 3G PER DAY
     Route: 048
     Dates: start: 20060321
  5. NORTUSSINE [Concomitant]
     Indication: PNEUMONIA
     Dosage: 1TBS THREE TIMES PER DAY
     Route: 048
     Dates: start: 20060321
  6. MEDROL [Concomitant]
     Dosage: 32MG PER DAY
     Route: 048
     Dates: start: 20060330
  7. NEXIUM [Concomitant]
     Route: 065
     Dates: start: 20060330

REACTIONS (8)
  - ALANINE AMINOTRANSFERASE INCREASED [None]
  - ASPARTATE AMINOTRANSFERASE INCREASED [None]
  - BLOOD ALKALINE PHOSPHATASE INCREASED [None]
  - CONDITION AGGRAVATED [None]
  - GAMMA-GLUTAMYLTRANSFERASE INCREASED [None]
  - HEPATOCELLULAR DAMAGE [None]
  - SERUM FERRITIN INCREASED [None]
  - WEIGHT DECREASED [None]
